FAERS Safety Report 9559243 (Version 1)
Quarter: 2013Q3

REPORT INFORMATION
  Report Type: Report from Study
  Country: US (occurrence: US)
  Receive Date: 20130927
  Receipt Date: 20130927
  Transmission Date: 20140515
  Serious: Yes (Hospitalization)
  Sender: FDA-Public Use
  Company Number: PHEH2013US020142

PATIENT
  Sex: Male

DRUGS (2)
  1. TOBI [Suspect]
     Indication: AMYOTROPHIC LATERAL SCLEROSIS
     Dosage: 300 MG, BID
  2. TOBI [Suspect]
     Indication: OFF LABEL USE

REACTIONS (1)
  - Pulmonary oedema [Unknown]
